FAERS Safety Report 7987193-4 (Version None)
Quarter: 2011Q4

REPORT INFORMATION
  Report Type: 
  Country: None (occurrence: None)
  Receive Date: 20111216
  Receipt Date: 20111010
  Transmission Date: 20120403
  Serious: No
  Sender: FDA-Public Use
  Company Number: US-BRISTOL-MYERS SQUIBB COMPANY-16148454

PATIENT
  Age: 41 Year
  Sex: Female
  Weight: 97 kg

DRUGS (4)
  1. PAXIL [Concomitant]
  2. AMBIEN [Concomitant]
     Dosage: AT BED TIME
  3. ABILIFY [Suspect]
     Indication: ANXIETY
     Dosage: HALF TABLET
     Route: 048
     Dates: start: 20111001, end: 20111010
  4. ABILIFY [Suspect]
     Indication: DEPRESSION
     Dosage: HALF TABLET
     Route: 048
     Dates: start: 20111001, end: 20111010

REACTIONS (6)
  - BLOOD PRESSURE INCREASED [None]
  - NAUSEA [None]
  - INSOMNIA [None]
  - VISION BLURRED [None]
  - HEART RATE INCREASED [None]
  - FEELING ABNORMAL [None]
